FAERS Safety Report 4515432-0 (Version None)
Quarter: 2004Q4

REPORT INFORMATION
  Report Type: 
  Country: None (occurrence: None)
  Receive Date: 20041126
  Receipt Date: 20041118
  Transmission Date: 20050328
  Serious: Yes (Other)
  Sender: FDA-Public Use
  Company Number: 2004096020

PATIENT
  Sex: Male

DRUGS (1)
  1. NEURONTIN [Suspect]
     Indication: PAIN IN EXTREMITY

REACTIONS (5)
  - ANXIETY [None]
  - CONVULSION [None]
  - DEPRESSION [None]
  - DRUG INEFFECTIVE [None]
  - HALLUCINATION [None]
